FAERS Safety Report 23588646 (Version 2)
Quarter: 2024Q3

REPORT INFORMATION
  Report Type: Report from Study
  Country: RU (occurrence: RU)
  Receive Date: 20240302
  Receipt Date: 20240808
  Transmission Date: 20241017
  Serious: Yes (Other)
  Sender: NOVARTIS
  Company Number: RU-002147023-NVSC2024RU043504

PATIENT
  Age: 80 Year

DRUGS (3)
  1. RIBOCICLIB [Suspect]
     Active Substance: RIBOCICLIB
     Indication: Product used for unknown indication
     Dosage: 600 MG, QD ON DAYS 1-21 OF THE 28- DAY CYCLE
     Route: 048
     Dates: start: 20210702
  2. FULVESTRANT [Suspect]
     Active Substance: FULVESTRANT
     Indication: Product used for unknown indication
     Dosage: 500 MG, CYCLIC IN 28-DAY  CYCLES (IN  THE 1ST MONTH ON  THE 1ST AND 15TH DAY)
     Route: 030
     Dates: start: 20210702
  3. DENOSUMAB [Suspect]
     Active Substance: DENOSUMAB
     Indication: Product used for unknown indication
     Dosage: 120 MG IN 28-DAY CYCLES
     Route: 065
     Dates: start: 20210702

REACTIONS (1)
  - Osteonecrosis of jaw [Unknown]
